FAERS Safety Report 18799015 (Version 3)
Quarter: 2022Q3

REPORT INFORMATION
  Report Type: Spontaneous
  Country: JP (occurrence: JP)
  Receive Date: 20210128
  Receipt Date: 20220714
  Transmission Date: 20221027
  Serious: Yes (Hospitalization, Other)
  Sender: FDA-Public Use
  Company Number: JP-GSKNCCC-CASE-01130930_AE-39725

PATIENT

DRUGS (1)
  1. SUMATRIPTAN SUCCINATE [Suspect]
     Active Substance: SUMATRIPTAN SUCCINATE
     Indication: Headache
     Dosage: UNK, BID
     Route: 048

REACTIONS (2)
  - Bile duct stone [Unknown]
  - Product use issue [Unknown]
